FAERS Safety Report 4544899-7 (Version None)
Quarter: 2005Q1

REPORT INFORMATION
  Report Type: 
  Country: None (occurrence: None)
  Receive Date: 20050104
  Receipt Date: 20041221
  Transmission Date: 20050727
  Serious: Yes (Death, Other)
  Sender: FDA-Public Use
  Company Number: WAES 0412USA02707

PATIENT
  Age: 70 Year
  Sex: Male

DRUGS (2)
  1. DECADRON [Suspect]
     Indication: MULTIPLE MYELOMA
     Dosage: 40 MG/DAILY PO
     Route: 048
  2. THALIDOMIDE [Suspect]
     Indication: MULTIPLE MYELOMA
     Dosage: 200 MG/DAILY

REACTIONS (13)
  - ANAEMIA [None]
  - CARDIAC FAILURE CONGESTIVE [None]
  - CYANOSIS [None]
  - DISSEMINATED INTRAVASCULAR COAGULATION [None]
  - GENERAL PHYSICAL HEALTH DETERIORATION [None]
  - HYPERURICAEMIA [None]
  - LEUKOPENIA [None]
  - MULTI-ORGAN FAILURE [None]
  - RENAL FAILURE [None]
  - SEPTIC SHOCK [None]
  - STAPHYLOCOCCAL BACTERAEMIA [None]
  - TACHYPNOEA [None]
  - THROMBOCYTOPENIA [None]
